FAERS Safety Report 10210978 (Version 1)
Quarter: 2014Q2

REPORT INFORMATION
  Report Type: Spontaneous
  Country: US (occurrence: None)
  Receive Date: 20140530
  Receipt Date: 20140530
  Transmission Date: 20141212
  Serious: Yes (Other)
  Sender: FDA-Public Use
  Company Number: None

PATIENT
  Age: 17 Year
  Sex: Male

DRUGS (2)
  1. AFINITOR [Suspect]
     Indication: RENAL CANCER
     Route: 048
     Dates: start: 20140206
  2. AFINITOR [Suspect]
     Indication: HEPATIC CANCER
     Route: 048
     Dates: start: 20140206

REACTIONS (1)
  - Fatigue [None]
